FAERS Safety Report 5669088-4 (Version None)
Quarter: 2008Q1

REPORT INFORMATION
  Report Type: 
  Country: None (occurrence: None)
  Receive Date: 20080317
  Receipt Date: 20080306
  Transmission Date: 20080703
  Serious: Yes (Death)
  Sender: FDA-Public Use
  Company Number: US-JNJFOC-20080302162

PATIENT
  Age: 35 Year
  Sex: Male

DRUGS (2)
  1. FENTANYL [Suspect]
     Indication: DRUG DIVERSION
     Route: 065
  2. HEROIN [Suspect]
     Indication: DRUG DIVERSION

REACTIONS (1)
  - DRUG DIVERSION [None]
